FAERS Safety Report 15675926 (Version 1)
Quarter: 2018Q4

REPORT INFORMATION
  Report Type: Spontaneous
  Country: US (occurrence: US)
  Receive Date: 20181130
  Receipt Date: 20181130
  Transmission Date: 20190205
  Serious: Yes (Life-Threatening, Hospitalization)
  Sender: FDA-Public Use
  Company Number: US-PFIZER INC-2018492780

PATIENT
  Age: 60 Year
  Sex: Female

DRUGS (1)
  1. XELJANZ XR [Suspect]
     Active Substance: TOFACITINIB CITRATE
     Dosage: 11 MG, DAILY
     Route: 048
     Dates: start: 201802, end: 201811

REACTIONS (4)
  - Pharyngeal oedema [Unknown]
  - Eye swelling [Unknown]
  - Anaphylactic reaction [Unknown]
  - Swelling face [Unknown]

NARRATIVE: CASE EVENT DATE: 20181128
